FAERS Safety Report 23110570 (Version 1)
Quarter: 2023Q4

REPORT INFORMATION
  Report Type: Spontaneous
  Country: US (occurrence: US)
  Receive Date: 20231026
  Receipt Date: 20231026
  Transmission Date: 20240110
  Serious: Yes (Hospitalization, Other)
  Sender: FDA-Public Use
  Company Number: US-SUN PHARMACEUTICAL INDUSTRIES LTD-2023R1-414261

PATIENT
  Age: 42 Year
  Sex: Female

DRUGS (1)
  1. AMLODIPINE [Suspect]
     Active Substance: AMLODIPINE BESYLATE
     Indication: Product used for unknown indication
     Dosage: UNK MILLIGRAM
     Route: 048

REACTIONS (6)
  - Overdose [Unknown]
  - Cardiogenic shock [Unknown]
  - Suicide attempt [Unknown]
  - Hypoxia [Unknown]
  - Lethargy [Unknown]
  - Hypotension [Unknown]
